FAERS Safety Report 12642776 (Version 2)
Quarter: 2016Q4

REPORT INFORMATION
  Report Type: Spontaneous
  Country: US (occurrence: US)
  Receive Date: 20160811
  Receipt Date: 20161003
  Transmission Date: 20170207
  Serious: No
  Sender: FDA-Public Use
  Company Number: PHEH2016US020061

PATIENT
  Sex: Female
  Weight: 58.96 kg

DRUGS (1)
  1. ZOFRAN [Suspect]
     Active Substance: ONDANSETRON HYDROCHLORIDE
     Indication: VOMITING IN PREGNANCY
     Dosage: UNK
     Route: 065
     Dates: start: 199310, end: 199403

REACTIONS (2)
  - Product use issue [Unknown]
  - Maternal exposure during pregnancy [Unknown]
